FAERS Safety Report 16577387 (Version 2)
Quarter: 2019Q3

REPORT INFORMATION
  Report Type: Spontaneous
  Country: US (occurrence: US)
  Receive Date: 20190716
  Receipt Date: 20190902
  Transmission Date: 20191004
  Serious: Yes (Other)
  Sender: FDA-Public Use
  Company Number: US-PFIZER INC-2018512437

PATIENT
  Age: 93 Year
  Sex: Female
  Weight: 68.27 kg

DRUGS (25)
  1. TENORMIN [Concomitant]
     Active Substance: ATENOLOL
     Dosage: 25 MG, DAILY
     Route: 048
  2. VITAMIN D3 [Concomitant]
     Active Substance: CHOLECALCIFEROL
     Dosage: 4000 IU, DAILY
     Route: 048
     Dates: start: 20150309
  3. TAMBOCOR [Concomitant]
     Active Substance: FLECAINIDE ACETATE
     Dosage: 50 MG, UNK (EVERY 12 (TWELVE) HOURS)
     Route: 048
  4. VITAMIN E [Concomitant]
     Active Substance: .ALPHA.-TOCOPHEROL
     Dosage: 400 IU, DAILY
     Route: 048
     Dates: start: 20180831
  5. LYRICA [Suspect]
     Active Substance: PREGABALIN
     Indication: NEUROPATHY PERIPHERAL
     Dosage: 75 MG, 3X/DAY
     Route: 048
     Dates: start: 20190702
  6. TAPAZOLE [Concomitant]
     Active Substance: METHIMAZOLE
     Dosage: 5 MG, DAILY
     Route: 048
  7. TOPAMAX [Concomitant]
     Active Substance: TOPIRAMATE
     Indication: NEURALGIA
     Dosage: 50 MG, AS NEEDED
     Dates: start: 20190524
  8. ATENOLOL. [Concomitant]
     Active Substance: ATENOLOL
     Dosage: 25 MG, DAILY
     Route: 048
     Dates: start: 20180909
  9. LYRICA [Suspect]
     Active Substance: PREGABALIN
     Indication: MONONEUROPATHY
     Dosage: 100 MG, 3X/DAY
     Route: 048
  10. VITAMIN D3 [Concomitant]
     Active Substance: CHOLECALCIFEROL
     Dosage: 5000 IU, DAILY
     Route: 048
  11. FLECAINIDE ACETATE. [Concomitant]
     Active Substance: FLECAINIDE ACETATE
     Dosage: 50 MG, UNK (TAKE 1 TABLET BY MOUTH EVERY 12 HOURS )
     Dates: start: 20190414
  12. LYRICA [Suspect]
     Active Substance: PREGABALIN
     Indication: HEREDITARY DISORDER
     Dosage: 100 MG, 3X/DAY (EVERY MORNING AND TWO CAPSULE EVERY EVENING)
     Route: 048
  13. METHIMAZOLE. [Concomitant]
     Active Substance: METHIMAZOLE
     Dosage: 5 MG, ALTERNATE DAY
     Route: 048
     Dates: start: 20190502
  14. CALCIUM CARBONATE. [Concomitant]
     Active Substance: CALCIUM CARBONATE
     Dosage: 1000 MG, DAILY (TAKE 2 TABLETS BY MOUTH)
     Route: 048
  15. NAMENDA XR [Concomitant]
     Active Substance: MEMANTINE HYDROCHLORIDE
     Dosage: 28 MG, DAILY
     Route: 048
     Dates: start: 20180922
  16. FLUOROURACIL. [Concomitant]
     Active Substance: FLUOROURACIL
     Dosage: UNK UNK, 2X/DAY(APPLY TO LESIONS RIGHT CHEEK TWICE DAILY X 2 WEEKS)
     Route: 061
     Dates: start: 20180716
  17. BUMEX [Concomitant]
     Active Substance: BUMETANIDE
     Dosage: 2 MG, DAILY(2 TABLETS EVERY MORNING MAY USE ADDITIONAL 1 MG FOR 3 LBS FLUID OR IN A DAY)
     Route: 048
     Dates: start: 20190425
  18. K-DUR [Concomitant]
     Active Substance: POTASSIUM CHLORIDE
     Dosage: 40 MEQ, 2X/DAY
     Route: 048
  19. EXELON [Concomitant]
     Active Substance: RIVASTIGMINE TARTRATE
     Dosage: 9.5 MG, DAILY
     Route: 062
     Dates: start: 20190615
  20. BUMETANIDE. [Concomitant]
     Active Substance: BUMETANIDE
     Indication: OEDEMA
     Dosage: UNK (2 TABLETS EVERY MORNING MAY USE ADDITIONAL 1 MG FOR 3 LBS)
     Dates: start: 20190425
  21. ASPIRIN. [Concomitant]
     Active Substance: ASPIRIN
     Dosage: 325 MG, DAILY
     Route: 048
     Dates: start: 20181210
  22. LIPITOR [Concomitant]
     Active Substance: ATORVASTATIN CALCIUM
     Dosage: 80 MG, DAILY
     Route: 048
     Dates: start: 20190128
  23. BUMEX [Concomitant]
     Active Substance: BUMETANIDE
     Indication: OEDEMA
     Dosage: 1 MG, DAILY
     Route: 048
  24. TAPAZOLE [Concomitant]
     Active Substance: METHIMAZOLE
     Dosage: 5 MG, ALTERNATE DAY
     Route: 048
     Dates: start: 20190502
  25. KLOR-CON [Concomitant]
     Active Substance: POTASSIUM CHLORIDE
     Dosage: 40 MEQ, 2X/DAY
     Route: 048
     Dates: start: 20190501

REACTIONS (5)
  - Full blood count abnormal [Unknown]
  - Urine analysis abnormal [Unknown]
  - Cerebral atrophy [Unknown]
  - Dementia [Recovered/Resolved]
  - Metabolic function test abnormal [Unknown]

NARRATIVE: CASE EVENT DATE: 20190701
